FAERS Safety Report 6153331-1 (Version None)
Quarter: 2009Q2

REPORT INFORMATION
  Report Type: 
  Country: None (occurrence: None)
  Receive Date: 20090409
  Receipt Date: 20090409
  Transmission Date: 20091009
  Serious: No
  Sender: FDA-Public Use
  Company Number: None

PATIENT
  Age: 92 Year
  Sex: Female
  Weight: 81.6475 kg

DRUGS (1)
  1. DIGOXIN [Suspect]
     Indication: ATRIAL FIBRILLATION
     Dosage: 125 MCG TAB 1 PO DAILY PO
     Route: 048
     Dates: start: 20081022

REACTIONS (2)
  - NAUSEA [None]
  - PRODUCT QUALITY ISSUE [None]
